FAERS Safety Report 4695491-5 (Version None)
Quarter: 2005Q2

REPORT INFORMATION
  Report Type: 
  Country: None (occurrence: None)
  Receive Date: 20050608
  Receipt Date: 20050105
  Transmission Date: 20051028
  Serious: No
  Sender: FDA-Public Use
  Company Number: A03200500034

PATIENT
  Age: 69 Year
  Sex: Male

DRUGS (7)
  1. ELOXATIN [Suspect]
     Indication: COLORECTAL CANCER METASTATIC
     Dosage: 170 MG Q3W - INTRAVENOUS NOS
     Route: 042
     Dates: start: 20041019, end: 20041019
  2. XELODA [Suspect]
     Indication: COLORECTAL CANCER METASTATIC
     Dosage: FOR 14 DAYS, OFF 1 WEEK, ORAL
     Route: 048
     Dates: start: 20040816
  3. BEVACIZUMAB [Concomitant]
  4. METFORMIN HCL [Concomitant]
  5. PIOGLITAZONE HCL [Concomitant]
  6. DEXAMETHASONE [Concomitant]
  7. GRANISETRON [Concomitant]

REACTIONS (4)
  - GOUT [None]
  - INJECTION SITE ERYTHEMA [None]
  - INJECTION SITE SWELLING [None]
  - PAIN IN EXTREMITY [None]
